FAERS Safety Report 24295689 (Version 1)
Quarter: 2024Q3

REPORT INFORMATION
  Report Type: Spontaneous
  Country: US (occurrence: None)
  Receive Date: 20240908
  Receipt Date: 20240908
  Transmission Date: 20241016
  Serious: No
  Sender: ASTRAZENECA
  Company Number: 2024A188046

PATIENT
  Age: 79 Year
  Sex: Male

DRUGS (1)
  1. FARXIGA [Suspect]
     Active Substance: DAPAGLIFLOZIN PROPANEDIOL
     Indication: Chronic kidney disease
     Route: 048

REACTIONS (4)
  - Diabetes mellitus inadequate control [Unknown]
  - Muscle spasms [Unknown]
  - Glomerular filtration rate decreased [Unknown]
  - Therapy cessation [Unknown]

NARRATIVE: CASE EVENT DATE: 20240101
